FAERS Safety Report 4641046-8 (Version None)
Quarter: 2005Q2

REPORT INFORMATION
  Report Type: 
  Country: None (occurrence: None)
  Receive Date: 20050421
  Receipt Date: 20050407
  Transmission Date: 20051028
  Serious: Yes (Hospitalization)
  Sender: FDA-Public Use
  Company Number: GB-JNJFOC-20050402151

PATIENT
  Sex: Female

DRUGS (12)
  1. INFLIXIMAB [Suspect]
     Indication: SCLERODERMA
     Dosage: 3RD INFUSION.
     Route: 042
  2. CALCICHEW [Concomitant]
     Indication: SCLERODERMA
     Route: 049
  3. PREDNISOLONE [Concomitant]
     Indication: SCLERODERMA
     Route: 049
  4. CLIMESSE [Concomitant]
     Route: 049
  5. CLIMESSE [Concomitant]
     Indication: SCLERODERMA
     Route: 049
  6. LANSOPRAZOLE [Concomitant]
     Indication: SCLERODERMA
     Route: 049
  7. PERIDOPRIL [Concomitant]
     Indication: SCLERODERMA
     Route: 049
  8. COOZAAR [Concomitant]
     Indication: SCLERODERMA
     Route: 049
  9. PARACETAMOL [Concomitant]
     Route: 049
  10. LIDOCAINE [Concomitant]
     Route: 003
  11. LORATADINE [Concomitant]
     Route: 049
  12. CLONEZEPAM [Concomitant]
     Route: 049

REACTIONS (6)
  - DYSARTHRIA [None]
  - FEELING COLD [None]
  - FEELING HOT [None]
  - FEELING HOT AND COLD [None]
  - INFUSION RELATED REACTION [None]
  - PAIN [None]
